FAERS Safety Report 22186535 (Version 1)
Quarter: 2023Q2

REPORT INFORMATION
  Report Type: Spontaneous
  Country: US (occurrence: US)
  Receive Date: 20230407
  Receipt Date: 20230407
  Transmission Date: 20230722
  Serious: No
  Sender: FDA-Public Use
  Company Number: US-GSK-US2023AMR047959

PATIENT
  Sex: Female

DRUGS (2)
  1. BENLYSTA [Suspect]
     Active Substance: BELIMUMAB
     Indication: Systemic lupus erythematosus
     Dosage: 800 MG, Q4W
     Route: 042
  2. BENLYSTA [Suspect]
     Active Substance: BELIMUMAB
     Indication: Renal disorder
     Dosage: 800 MG, Q4W
     Route: 042

REACTIONS (5)
  - Depressed mood [Unknown]
  - Insomnia [Unknown]
  - Diarrhoea [Unknown]
  - Back pain [Unknown]
  - Product use in unapproved indication [Unknown]
